FAERS Safety Report 26097092 (Version 2)
Quarter: 2025Q4

REPORT INFORMATION
  Report Type: Spontaneous
  Country: US (occurrence: US)
  Receive Date: 20251127
  Receipt Date: 20251222
  Transmission Date: 20260118
  Serious: No
  Sender: ROCHE
  Company Number: US-ROCHE-10000441465

PATIENT
  Sex: Male
  Weight: 73.48 kg

DRUGS (1)
  1. XOLAIR [Suspect]
     Active Substance: OMALIZUMAB
     Indication: Idiopathic urticaria
     Dosage: DATE OF MOST RECENT DOSE PRIOR TO EVENT ONSET: 07-NOV-2025
     Route: 058
     Dates: start: 202508

REACTIONS (1)
  - Idiopathic urticaria [Unknown]
